FAERS Safety Report 12228601 (Version 6)
Quarter: 2016Q2

REPORT INFORMATION
  Report Type: Spontaneous
  Country: US (occurrence: US)
  Receive Date: 20160401
  Receipt Date: 20160414
  Transmission Date: 20160815
  Serious: Yes (Other)
  Sender: FDA-Public Use
  Company Number: US-ACTAVIS-2016-06965

PATIENT
  Age: 61 Year
  Sex: Female

DRUGS (7)
  1. CARBOPLATIN (WATSON LABORATORIES) [Suspect]
     Active Substance: CARBOPLATIN
     Indication: OVARIAN CANCER
     Dosage: UNK, CYCLICAL
     Route: 051
     Dates: start: 201307
  2. PACLITAXEL (ATLLC) [Suspect]
     Active Substance: PACLITAXEL
     Indication: OVARIAN CANCER
     Dosage: 80 MG/M2, CYCLICAL
     Route: 065
     Dates: start: 20130820
  3. CARBOPLATIN (WATSON LABORATORIES) [Suspect]
     Active Substance: CARBOPLATIN
     Dosage: 0.2 MG, CYCLICAL
     Route: 065
     Dates: start: 201308
  4. CARBOPLATIN (WATSON LABORATORIES) [Suspect]
     Active Substance: CARBOPLATIN
     Dosage: 1.7 MG, UNK
     Route: 065
     Dates: start: 201308
  5. PACLITAXEL (ATLLC) [Suspect]
     Active Substance: PACLITAXEL
     Dosage: UNK, CYCLICAL
     Route: 051
     Dates: start: 201307
  6. DECADRON [Concomitant]
     Active Substance: DEXAMETHASONE
     Indication: PROPHYLAXIS
     Dosage: 20 MG, UNKNOWN
     Route: 065
     Dates: start: 20130820
  7. DIPHENHYDRAMINE. [Concomitant]
     Active Substance: DIPHENHYDRAMINE
     Indication: PROPHYLAXIS
     Dosage: 50 MG, UNKNOWN
     Route: 065
     Dates: start: 20130820

REACTIONS (2)
  - Haemolytic anaemia [Recovered/Resolved]
  - Drug specific antibody present [Recovered/Resolved]
